FAERS Safety Report 17569840 (Version 1)
Quarter: 2020Q1

REPORT INFORMATION
  Report Type: Spontaneous
  Country: US (occurrence: US)
  Receive Date: 20200323
  Receipt Date: 20200323
  Transmission Date: 20200409
  Serious: Yes (Other)
  Sender: FDA-Public Use
  Company Number: US-AUROBINDO-AUR-APL-2020-014008

PATIENT
  Age: 43 Year
  Sex: Female

DRUGS (4)
  1. METOPROLOL. [Suspect]
     Active Substance: METOPROLOL
     Indication: CARDIAC SARCOIDOSIS
     Dosage: 50 MILLIGRAM, 3 TIMES A DAY
     Route: 065
  2. SOTALOL. [Suspect]
     Active Substance: SOTALOL
     Indication: SHOCK
     Dosage: UNK
     Route: 065
  3. FUROSEMIDE. [Suspect]
     Active Substance: FUROSEMIDE
     Indication: CARDIAC FAILURE ACUTE
     Dosage: UNK
     Route: 042
  4. PREDNISONE. [Suspect]
     Active Substance: PREDNISONE
     Indication: CARDIAC SARCOIDOSIS
     Dosage: 60 MILLIGRAM, DAILY WITH SLOW TAPER
     Route: 065

REACTIONS (2)
  - Oligohydramnios [Unknown]
  - Exposure during pregnancy [Unknown]
